FAERS Safety Report 5923722-X (Version None)
Quarter: 2008Q4

REPORT INFORMATION
  Report Type: 
  Country: None (occurrence: None)
  Receive Date: 20081020
  Receipt Date: 20081008
  Transmission Date: 20090506
  Serious: Yes (Other)
  Sender: FDA-Public Use
  Company Number: B0540682A

PATIENT
  Age: 80 Year
  Sex: Female

DRUGS (1)
  1. ARIXTRA [Suspect]
     Indication: DRUG USE FOR UNKNOWN INDICATION
     Dosage: 2.5MG PER DAY
     Route: 058
     Dates: start: 20080424, end: 20080708

REACTIONS (3)
  - INCORRECT DRUG ADMINISTRATION DURATION [None]
  - INJECTION SITE NECROSIS [None]
  - STAPHYLOCOCCAL INFECTION [None]
